FAERS Safety Report 18627443 (Version 1)
Quarter: 2020Q4

REPORT INFORMATION
  Report Type: Report from Study
  Country: US (occurrence: US)
  Receive Date: 20201217
  Receipt Date: 20201217
  Transmission Date: 20210114
  Serious: Yes (Hospitalization, Other)
  Sender: FDA-Public Use
  Company Number: US-GILEAD-2020-0509076

PATIENT
  Age: 60 Year
  Sex: Female

DRUGS (4)
  1. TOBRAMYCIN. [Concomitant]
     Active Substance: TOBRAMYCIN
  2. TRIKAFTA [Concomitant]
     Active Substance: ELEXACAFTOR\IVACAFTOR\TEZACAFTOR
  3. PULMOZYME [Concomitant]
     Active Substance: DORNASE ALFA
  4. AZTREONAM LYSINE [Suspect]
     Active Substance: AZTREONAM LYSINE
     Indication: CYSTIC FIBROSIS
     Dosage: 75 MG, TID FOR 28 DAYS ON, 28 DAYS OFF
     Route: 055
     Dates: start: 20180108

REACTIONS (1)
  - Sinus operation [Recovered/Resolved]

NARRATIVE: CASE EVENT DATE: 20201201
